FAERS Safety Report 22141958 (Version 1)
Quarter: 2023Q1

REPORT INFORMATION
  Report Type: Spontaneous
  Country: US (occurrence: None)
  Receive Date: 20230324
  Receipt Date: 20230324
  Transmission Date: 20230418
  Serious: No
  Sender: FDA-Public Use
  Company Number: None

PATIENT
  Age: 54 Year
  Sex: Female
  Weight: 91.63 kg

DRUGS (11)
  1. VERZENIO [Suspect]
     Active Substance: ABEMACICLIB
     Indication: Breast cancer female
     Dosage: FREQUENCY : TWICE A DAY;?
     Route: 048
     Dates: start: 20230308
  2. METOPROLOL [Concomitant]
     Active Substance: METOPROLOL
  3. VITAMINS [Concomitant]
     Active Substance: VITAMINS
  4. PEPCID [Concomitant]
     Active Substance: FAMOTIDINE
  5. VITAMIN D3 [Concomitant]
     Active Substance: CHOLECALCIFEROL
  6. BUPROPION [Concomitant]
  7. GLIPIZIDE [Concomitant]
     Active Substance: GLIPIZIDE
  8. TRULICITY [Concomitant]
     Active Substance: DULAGLUTIDE
  9. AMBIEN [Concomitant]
  10. LISINOPRIL [Concomitant]
  11. WELLBUTRIN XL [Concomitant]
     Active Substance: BUPROPION HYDROCHLORIDE

REACTIONS (2)
  - Diarrhoea [None]
  - Fatigue [None]

NARRATIVE: CASE EVENT DATE: 20230301
